FAERS Safety Report 8933402 (Version 1)
Quarter: 2012Q4

REPORT INFORMATION
  Report Type: 
  Country: DE (occurrence: IT)
  Receive Date: 20121128
  Receipt Date: 20121128
  Transmission Date: 20130627
  Serious: Yes (Death, Hospitalization)
  Sender: FDA-Public Use
  Company Number: IT-BRISTOL-MYERS SQUIBB COMPANY-16955239

PATIENT
  Age: 75 Year
  Sex: Male

DRUGS (11)
  1. METFORMIN HCL [Suspect]
     Indication: DIABETES MELLITUS
     Route: 048
     Dates: start: 20110902, end: 20110902
  2. TRIATEC [Concomitant]
  3. CARDICOR [Concomitant]
  4. CORDARONE [Concomitant]
  5. LASIX [Concomitant]
  6. PANTORC [Concomitant]
  7. PLAVIX [Concomitant]
  8. OXYCONTIN [Concomitant]
  9. LYRICA [Concomitant]
  10. LANTUS [Concomitant]
     Dosage: 1df=100 IU/ml
  11. COUMADIN [Concomitant]

REACTIONS (4)
  - Cardiac arrest [Fatal]
  - Lactic acidosis [Fatal]
  - Dyspnoea [Fatal]
  - Asthenia [Fatal]
